FAERS Safety Report 9265839 (Version 1)
Quarter: 2013Q2

REPORT INFORMATION
  Report Type: Spontaneous
  Country: JP (occurrence: JP)
  Receive Date: 20130501
  Receipt Date: 20130501
  Transmission Date: 20140414
  Serious: Yes (Hospitalization)
  Sender: FDA-Public Use
  Company Number: JP-PFIZER INC-2012313509

PATIENT
  Age: 74 Year
  Sex: Male
  Weight: 58 kg

DRUGS (3)
  1. ZITHROMAC [Suspect]
     Dosage: 500 MG, 1X/DAY
     Route: 048
     Dates: start: 20121210
  2. MUCODYNE [Concomitant]
     Dosage: UNK
     Route: 048
     Dates: start: 20121210
  3. ASTOMIN [Concomitant]
     Dosage: UNK
     Route: 048
     Dates: start: 20121210

REACTIONS (4)
  - Rhabdomyolysis [Recovered/Resolved]
  - Blood creatine phosphokinase increased [Recovered/Resolved]
  - Aspartate aminotransferase increased [Recovered/Resolved]
  - Blood lactate dehydrogenase increased [Recovered/Resolved]
